FAERS Safety Report 7357298-X (Version None)
Quarter: 2011Q1

REPORT INFORMATION
  Report Type: 
  Country: None (occurrence: None)
  Receive Date: 20110311
  Receipt Date: 20110311
  Transmission Date: 20110831
  Serious: Yes (Hospitalization)
  Sender: FDA-Public Use
  Company Number: None

PATIENT
  Age: 58 Year
  Sex: Male
  Weight: 74 kg

DRUGS (1)
  1. BENZOCAINE TOPICAL SPRAY 20% BEUTLICH PHARMACEUTICALS [Suspect]
     Indication: ETHMOID SINUS SURGERY
     Dosage: 1-2 SPRAYS ONCE TOP
     Route: 061
     Dates: start: 20100614, end: 20100614

REACTIONS (3)
  - OXYGEN SATURATION DECREASED [None]
  - METHAEMOGLOBINAEMIA [None]
  - DRUG HYPERSENSITIVITY [None]
